FAERS Safety Report 6604456-5 (Version None)
Quarter: 2010Q1

REPORT INFORMATION
  Report Type: 
  Country: None (occurrence: None)
  Receive Date: 20100226
  Receipt Date: 20091016
  Transmission Date: 20100710
  Serious: No
  Sender: FDA-Public Use
  Company Number: A0812193A

PATIENT
  Sex: Male

DRUGS (1)
  1. LAMICTAL CD [Suspect]
     Dosage: 5MG UNKNOWN
     Route: 048

REACTIONS (2)
  - LIP SWELLING [None]
  - RASH [None]
